FAERS Safety Report 7162828-7 (Version None)
Quarter: 2010Q4

REPORT INFORMATION
  Report Type: 
  Country: None (occurrence: None)
  Receive Date: 20101215
  Receipt Date: 20091228
  Transmission Date: 20110411
  Serious: Yes (Other)
  Sender: FDA-Public Use
  Company Number: BR-PFIZER INC-2009313888

PATIENT
  Age: 54 Year
  Sex: Female
  Weight: 62 kg

DRUGS (3)
  1. LYRICA [Suspect]
     Indication: PAIN
     Dosage: 75 MG, 2X/DAY
     Route: 048
     Dates: start: 20091201, end: 20091201
  2. LYRICA [Suspect]
     Indication: PAIN IN EXTREMITY
  3. DICLOFENAC [Concomitant]

REACTIONS (6)
  - ABDOMINAL PAIN UPPER [None]
  - BEDRIDDEN [None]
  - DIZZINESS [None]
  - DYSSTASIA [None]
  - HEADACHE [None]
  - NAUSEA [None]
